FAERS Safety Report 4422782-5 (Version None)
Quarter: 2004Q3

REPORT INFORMATION
  Report Type: 
  Country: None (occurrence: None)
  Receive Date: 20040719
  Receipt Date: 20030521
  Transmission Date: 20050211
  Serious: Yes (Hospitalization)
  Sender: FDA-Public Use
  Company Number: M03-INT-067

PATIENT
  Sex: Male

DRUGS (2)
  1. INTEGRILIN [Suspect]
     Indication: CORONARY ANGIOPLASTY
     Dosage: SEE IMAGE
     Route: 040
     Dates: start: 20030507, end: 20030507
  2. INTEGRILIN [Suspect]
     Indication: CORONARY ANGIOPLASTY
     Dosage: SEE IMAGE
     Route: 040
     Dates: start: 20030507

REACTIONS (2)
  - ACUTE MYOCARDIAL INFARCTION [None]
  - CEREBRAL INFARCTION [None]
